FAERS Safety Report 5025135-4 (Version None)
Quarter: 2006Q2

REPORT INFORMATION
  Report Type: 
  Country: None (occurrence: None)
  Receive Date: 20060609
  Receipt Date: 20060609
  Transmission Date: 20061013
  Serious: Yes (Life-Threatening)
  Sender: FDA-Public Use
  Company Number: None

PATIENT
  Age: 69 Year
  Sex: Female
  Weight: 82 kg

DRUGS (12)
  1. QUETIAPINE FUMARATE [Suspect]
     Indication: BIPOLAR DISORDER
     Dosage: 200 MG AT BEDTIME PO
     Route: 048
     Dates: start: 20060605, end: 20060605
  2. QUETIAPINE FUMARATE [Suspect]
     Indication: BIPOLAR DISORDER
     Dosage: 300 MG AT BEDTIME PO
     Route: 048
     Dates: start: 20060606, end: 20060606
  3. DILTIAZEM HCL [Concomitant]
  4. CLONAZEPAM [Concomitant]
  5. DIAZIDE [Concomitant]
  6. ROSUVASTATIN [Concomitant]
  7. ACCUPRIL [Concomitant]
  8. ASPIRIN [Concomitant]
  9. EXCEDRIN (MIGRAINE) [Concomitant]
  10. LEVOXYL [Concomitant]
  11. DIVALPROEX SODIUM [Concomitant]
  12. TEMAZEPAM [Concomitant]

REACTIONS (6)
  - CARDIO-RESPIRATORY ARREST [None]
  - ELECTROMECHANICAL DISSOCIATION [None]
  - FALL [None]
  - LOSS OF CONSCIOUSNESS [None]
  - PULSE ABSENT [None]
  - VENTRICULAR FIBRILLATION [None]
